FAERS Safety Report 21887629 (Version 2)
Quarter: 2023Q2

REPORT INFORMATION
  Report Type: Report from Study
  Country: US (occurrence: US)
  Receive Date: 20230120
  Receipt Date: 20230404
  Transmission Date: 20230721
  Serious: No
  Sender: FDA-Public Use
  Company Number: US-ABBVIE-21K-163-4036774-00

PATIENT
  Age: 25 Year
  Sex: Female

DRUGS (2)
  1. HUMIRA [Suspect]
     Active Substance: ADALIMUMAB
     Indication: Hidradenitis
     Route: 058
     Dates: start: 20181220, end: 2021
  2. HUMIRA [Suspect]
     Active Substance: ADALIMUMAB
     Route: 058
     Dates: start: 2021

REACTIONS (8)
  - Illness [Not Recovered/Not Resolved]
  - COVID-19 [Recovered/Resolved]
  - Unevaluable event [Recovered/Resolved]
  - Stress [Unknown]
  - Malaise [Not Recovered/Not Resolved]
  - Hidradenitis [Recovering/Resolving]
  - Loss of personal independence in daily activities [Unknown]
  - Wound [Unknown]

NARRATIVE: CASE EVENT DATE: 20210101
